FAERS Safety Report 9277018 (Version 1)
Quarter: 2013Q2

REPORT INFORMATION
  Report Type: Spontaneous
  Country: FR (occurrence: None)
  Receive Date: 20130501
  Receipt Date: 20130501
  Transmission Date: 20140414
  Serious: Yes (Hospitalization)
  Sender: FDA-Public Use
  Company Number: 2013126638

PATIENT
  Age: 75 Year
  Sex: Male

DRUGS (11)
  1. FRAGMINE (DALTEPARIN SODIUM) SOLUTION FOR INJECTION [Suspect]
     Indication: DEEP VEIN THROMBOSIS
     Route: 058
     Dates: start: 20130403
  2. VOLTARENE [Suspect]
     Indication: OEDEMA
     Route: 058
     Dates: start: 20130406, end: 20130411
  3. INEXIUM [Suspect]
     Route: 048
     Dates: start: 20130406, end: 20130411
  4. ZOLPIDEM (ZOLPIDEM) [Suspect]
     Route: 048
     Dates: start: 20130403
  5. DEXERYL CREAM [Suspect]
     Dates: start: 20130402
  6. GARDENAL (PHENOBARBITAL) [Concomitant]
  7. TEGRETOL (CARBAMAZEPINE) UNKNOWN [Concomitant]
  8. URBANYL [Concomitant]
  9. TAHOR (ATORVASTATIN CALCIUM) [Concomitant]
  10. ARIXTRA (FONDAPARINUX SODIUM) [Concomitant]
  11. DOLIPRANE (PARACETAMOL) [Concomitant]

REACTIONS (2)
  - Laryngeal oedema [None]
  - Hypoxia [None]
